FAERS Safety Report 19858523 (Version 1)
Quarter: 2021Q3

REPORT INFORMATION
  Report Type: Spontaneous
  Country: US (occurrence: US)
  Receive Date: 20210921
  Receipt Date: 20210921
  Transmission Date: 20211014
  Serious: No
  Sender: FDA-Public Use
  Company Number: US-AUROBINDO-AUR-APL-2021-004325

PATIENT
  Sex: Female
  Weight: 52.6 kg

DRUGS (1)
  1. ALENDRONATE SODIUM TABLETS USP 70MG [Suspect]
     Active Substance: ALENDRONATE SODIUM
     Indication: OSTEOPOROSIS
     Dosage: 70 MILLIGRAM, EVERY WEEK
     Route: 048
     Dates: start: 2020

REACTIONS (6)
  - Contusion [Recovering/Resolving]
  - Road traffic accident [Unknown]
  - Medication error [Unknown]
  - Joint swelling [Recovering/Resolving]
  - Walking aid user [Recovered/Resolved]
  - Gait disturbance [Recovered/Resolved]

NARRATIVE: CASE EVENT DATE: 20201229
